FAERS Safety Report 7366563-1 (Version None)
Quarter: 2011Q1

REPORT INFORMATION
  Report Type: 
  Country: None (occurrence: None)
  Receive Date: 20110309
  Receipt Date: 20110228
  Transmission Date: 20110831
  Serious: Yes (Other)
  Sender: FDA-Public Use
  Company Number: MK-1185113

PATIENT
  Age: 40 Year
  Sex: Male
  Weight: 83 kg

DRUGS (3)
  1. TRAVATAN [Suspect]
     Indication: INTRAOCULAR PRESSURE INCREASED
     Dosage: (ONE DROP IN THE EVENING OPHTHALMIC)
     Route: 047
     Dates: start: 20100501
  2. FLIXOTIDE [Concomitant]
  3. FLIXONASE [Concomitant]

REACTIONS (5)
  - TACHYCARDIA [None]
  - CONDITION AGGRAVATED [None]
  - BREAST PAIN [None]
  - ASTHMA [None]
  - ANXIETY [None]
